FAERS Safety Report 19654644 (Version 1)
Quarter: 2021Q3

REPORT INFORMATION
  Report Type: Spontaneous
  Country: NL (occurrence: NL)
  Receive Date: 20210804
  Receipt Date: 20210804
  Transmission Date: 20211014
  Serious: Yes (Hospitalization, Other)
  Sender: FDA-Public Use
  Company Number: NL-SUN PHARMACEUTICAL INDUSTRIES LTD-2021R1-306494

PATIENT
  Age: 29 Year
  Sex: Male
  Weight: 128 kg

DRUGS (4)
  1. LIOTHYRONINE [Suspect]
     Active Substance: LIOTHYRONINE
     Indication: PRODUCT USED FOR UNKNOWN INDICATION
     Dosage: 50?100 UG, DAILY
     Route: 065
  2. METANDIENONE [Concomitant]
     Active Substance: METHANDROSTENOLONE
     Indication: PERFORMANCE ENHANCING PRODUCT USE
     Dosage: UNK
     Route: 065
  3. TESTOSTERONE ENANTHATE. [Concomitant]
     Active Substance: TESTOSTERONE ENANTHATE
     Indication: PERFORMANCE ENHANCING PRODUCT USE
     Dosage: UNK
     Route: 065
  4. MASTERON ENANTHATE [Concomitant]
     Indication: PERFORMANCE ENHANCING PRODUCT USE
     Route: 065

REACTIONS (1)
  - Familial periodic paralysis [Recovered/Resolved]
